FAERS Safety Report 12340780 (Version 1)
Quarter: 2016Q2

REPORT INFORMATION
  Report Type: Spontaneous
  Country: US (occurrence: None)
  Receive Date: 20160505
  Receipt Date: 20160505
  Transmission Date: 20160815
  Serious: Yes (Other)
  Sender: FDA-Public Use
  Company Number: None

PATIENT
  Age: 83 Year
  Sex: Male
  Weight: 93.44 kg

DRUGS (9)
  1. FISH OIL [Concomitant]
     Active Substance: FISH OIL
  2. CARVEDITOL [Concomitant]
  3. ATORVASTAIN 20 MG TABLETS [Concomitant]
     Active Substance: ATORVASTATIN
  4. VITAMIN E [Concomitant]
     Active Substance: .ALPHA.-TOCOPHEROL
  5. FOLIC ACID. [Concomitant]
     Active Substance: FOLIC ACID
  6. LISINOPRIL. [Concomitant]
     Active Substance: LISINOPRIL
  7. ELITE WHITE [Suspect]
     Active Substance: CARBAMIDE PEROXIDE
     Indication: DENTAL CARE
     Dosage: 30 MIN. BY MOUTH
     Route: 048
     Dates: start: 20160416, end: 20160416
  8. METFORMIN [Concomitant]
     Active Substance: METFORMIN HYDROCHLORIDE
  9. ASPRIN BABY [Concomitant]

REACTIONS (2)
  - Gingival erythema [None]
  - Oral discomfort [None]

NARRATIVE: CASE EVENT DATE: 20160416
